FAERS Safety Report 18093607 (Version 1)
Quarter: 2020Q3

REPORT INFORMATION
  Report Type: Report from Study
  Country: CA (occurrence: CA)
  Receive Date: 20200730
  Receipt Date: 20200730
  Transmission Date: 20201103
  Serious: Yes (Hospitalization)
  Sender: FDA-Public Use
  Company Number: CA-PFIZER INC-2020287273

PATIENT
  Age: 90 Year
  Sex: Male

DRUGS (4)
  1. SALBUTAMOL SULFATE [Suspect]
     Active Substance: ALBUTEROL SULFATE
     Route: 065
  2. FLOVENT DISKUS [Suspect]
     Active Substance: FLUTICASONE PROPIONATE
     Dosage: 1 DF, 2 EVERY 1 DAYS
     Route: 065
  3. CORTEF [Suspect]
     Active Substance: HYDROCORTISONE
     Route: 065
  4. GLYCOPYRRONIUM BROMIDE/INDACATEROL MALEATE [Suspect]
     Active Substance: GLYCOPYRROLATE\INDACATEROL MALEATE
     Dosage: 1 DF, 1 EVERY 1 DAYS
     Route: 065

REACTIONS (2)
  - Pain in extremity [Unknown]
  - Asthma [Unknown]
